FAERS Safety Report 23205574 (Version 1)
Quarter: 2023Q4

REPORT INFORMATION
  Report Type: Spontaneous
  Country: CA (occurrence: CA)
  Receive Date: 20231120
  Receipt Date: 20231120
  Transmission Date: 20240110
  Serious: Yes (Other)
  Sender: FDA-Public Use
  Company Number: CA-MYLANLABS-2023M1123481

PATIENT
  Age: 40 Year
  Sex: Female

DRUGS (16)
  1. HULIO [Suspect]
     Active Substance: ADALIMUMAB-FKJP
     Indication: Colitis ulcerative
     Dosage: 80 MILLIGRAM, QW
     Route: 058
  2. BETAMETHASONE DIPROPIONATE [Suspect]
     Active Substance: BETAMETHASONE DIPROPIONATE
     Indication: Product used for unknown indication
     Dosage: UNK
     Route: 065
  3. DESOXIMETASONE [Suspect]
     Active Substance: DESOXIMETASONE
     Indication: Product used for unknown indication
     Dosage: UNK
     Route: 065
  4. ENTYVIO [Suspect]
     Active Substance: VEDOLIZUMAB
     Indication: Colitis ulcerative
     Dosage: 300 MILLIGRAM
     Route: 042
  5. INFLIXIMAB [Suspect]
     Active Substance: INFLIXIMAB
     Indication: Colitis ulcerative
     Dosage: UNK
     Route: 065
  6. MERCAPTOPURINE [Suspect]
     Active Substance: MERCAPTOPURINE
     Indication: Colitis ulcerative
     Dosage: UNK
     Route: 065
  7. MESALAMINE [Suspect]
     Active Substance: MESALAMINE
     Indication: Colitis ulcerative
     Dosage: UNK
     Route: 048
  8. MESALAMINE [Suspect]
     Active Substance: MESALAMINE
     Dosage: UNK
     Route: 054
  9. METHYLPREDNISOLONE [Suspect]
     Active Substance: METHYLPREDNISOLONE
     Indication: Colitis ulcerative
     Dosage: UNK
     Route: 042
  10. PREDNISOLONE [Suspect]
     Active Substance: PREDNISOLONE
     Indication: Colitis ulcerative
     Dosage: 10 MILLIGRAM, QD
     Route: 048
  11. PREDNISOLONE [Suspect]
     Active Substance: PREDNISOLONE
     Dosage: 40 MILLIGRAM
     Route: 065
  12. TOFACITINIB [Suspect]
     Active Substance: TOFACITINIB
     Indication: Colitis ulcerative
     Dosage: 10 MILLIGRAM, QD
     Route: 048
  13. USTEKINUMAB [Suspect]
     Active Substance: USTEKINUMAB
     Indication: Colitis ulcerative
     Dosage: UNK
     Route: 065
  14. RALTEGRAVIR [Concomitant]
     Active Substance: RALTEGRAVIR
     Indication: HIV infection
     Dosage: 400 MILLIGRAM, QD
     Route: 048
  15. EMTRICITABINE\TENOFOVIR [Concomitant]
     Active Substance: EMTRICITABINE\TENOFOVIR
     Indication: HIV infection
     Dosage: 200 MILLIGRAM, QD
     Route: 065
  16. TRUVADA [Concomitant]
     Active Substance: EMTRICITABINE\TENOFOVIR DISOPROXIL FUMARATE
     Indication: HIV infection
     Dosage: 10 MILLIGRAM, QD
     Route: 048

REACTIONS (12)
  - Cataract [Unknown]
  - Colitis ulcerative [Unknown]
  - Bacillus infection [Unknown]
  - Bacterial vulvovaginitis [Unknown]
  - Cellulitis [Unknown]
  - Central obesity [Unknown]
  - Cushingoid [Unknown]
  - Escherichia infection [Unknown]
  - Furuncle [Unknown]
  - Weight increased [Unknown]
  - Drug ineffective [Unknown]
  - Therapy non-responder [Unknown]
